FAERS Safety Report 5047724-3 (Version None)
Quarter: 2006Q3

REPORT INFORMATION
  Report Type: 
  Country: None (occurrence: None)
  Receive Date: 20060711
  Receipt Date: 20060629
  Transmission Date: 20061208
  Serious: Yes (Hospitalization, Other)
  Sender: FDA-Public Use
  Company Number: SP-200002119

PATIENT
  Age: 29 Year
  Sex: Male

DRUGS (12)
  1. REMICADE [Suspect]
     Route: 041
     Dates: start: 19981204
  2. REMICADE [Suspect]
     Indication: CROHN'S DISEASE
     Route: 041
     Dates: start: 19981204
  3. MECHLORETAMINE [Concomitant]
     Route: 065
  4. ADRIAMYCIN PFS [Concomitant]
     Route: 065
  5. VINCRISTINE [Concomitant]
  6. PROCARBAZINE [Concomitant]
  7. PREDNISONE [Concomitant]
  8. DACARBAZINE [Concomitant]
  9. VINBLASTINE [Concomitant]
  10. BLEOMYCIN [Concomitant]
  11. 5-ASA [Concomitant]
  12. METRONIDAZOLE [Concomitant]

REACTIONS (5)
  - COUGH [None]
  - DYSPNOEA [None]
  - HODGKIN'S DISEASE NODULAR SCLEROSIS STAGE UNSPECIFIED [None]
  - PLEURAL EFFUSION [None]
  - RASH PRURITIC [None]
